FAERS Safety Report 4433824-5 (Version None)
Quarter: 2004Q3

REPORT INFORMATION
  Report Type: 
  Country: None (occurrence: None)
  Receive Date: 20040825
  Receipt Date: 20040825
  Transmission Date: 20050211
  Serious: Yes (Other)
  Sender: FDA-Public Use
  Company Number: None

PATIENT
  Age: 28 Year
  Sex: Female
  Weight: 63.1 kg

DRUGS (7)
  1. FLUNISOLIDE [Suspect]
  2. PSEUDOEPHEDRINE HCL [Concomitant]
  3. LORATADINE [Concomitant]
  4. FLUNISOLIDE NASAL INH [Concomitant]
  5. SODIUM CHLORIDE NASAL SPRAY [Concomitant]
  6. PAROXETINE HCL [Concomitant]
  7. TRAZODONE HCL [Concomitant]

REACTIONS (2)
  - NASAL DISCOMFORT [None]
  - THROAT IRRITATION [None]
